FAERS Safety Report 18862072 (Version 5)
Quarter: 2021Q3

REPORT INFORMATION
  Report Type: Report from Study
  Country: EG (occurrence: EG)
  Receive Date: 20210208
  Receipt Date: 20210809
  Transmission Date: 20211014
  Serious: Yes (Other)
  Sender: FDA-Public Use
  Company Number: NVSC2021EG025691

PATIENT
  Age: 30 Year
  Sex: Female

DRUGS (14)
  1. KISQALI [Suspect]
     Active Substance: RIBOCICLIB
     Indication: BREAST CANCER METASTATIC
     Dosage: 3 DF, QD
     Route: 048
     Dates: start: 20201103
  2. KISQALI [Suspect]
     Active Substance: RIBOCICLIB
     Indication: METASTASES TO LUNG
     Dosage: 3 DF, QD
     Route: 048
     Dates: start: 20201103
  3. ZOMETA [Suspect]
     Active Substance: ZOLEDRONIC ACID
     Indication: BREAST CANCER METASTATIC
     Dosage: 1 SYRINGE DILUTED WITH 100ML DILUTION
     Route: 065
     Dates: start: 20200924
  4. ZOLADEX [Concomitant]
     Active Substance: GOSERELIN ACETATE
     Dosage: 3.6 MG, QMO
     Route: 065
     Dates: start: 20201024
  5. FEMARA [Suspect]
     Active Substance: LETROZOLE
     Indication: BREAST CANCER METASTATIC
     Dosage: 1 DF, QD
     Route: 048
     Dates: start: 20201024
  6. ZOMETA [Suspect]
     Active Substance: ZOLEDRONIC ACID
     Indication: METASTASES TO LUNG
     Dosage: UNK, QMO
     Route: 065
     Dates: start: 20201024
  7. FEMARA [Suspect]
     Active Substance: LETROZOLE
     Indication: METASTASES TO LUNG
     Dosage: 1 DF, QD
     Route: 048
     Dates: start: 20201024
  8. OSTEOCARE [Concomitant]
     Active Substance: CALCIUM\CHOLECALCIFEROL\MAGNESIUM\ZINC
     Indication: PRODUCT USED FOR UNKNOWN INDICATION
     Dosage: 1 DF, QD
     Route: 065
     Dates: start: 2017
  9. KISQALI [Suspect]
     Active Substance: RIBOCICLIB
     Indication: METASTASES TO SPINAL CORD
  10. ZOMETA [Suspect]
     Active Substance: ZOLEDRONIC ACID
     Indication: METASTASES TO SPINAL CORD
  11. OSTEOCARE [Concomitant]
     Active Substance: CALCIUM\CHOLECALCIFEROL\MAGNESIUM\ZINC
     Dosage: 2 DF, QD (ONE TAB IN THE MORNING AND 1 TAB AT NIGHT) (2 TAB/DAY)
     Route: 065
     Dates: start: 20200924
  12. FEMARA [Suspect]
     Active Substance: LETROZOLE
     Indication: METASTASES TO SPINAL CORD
  13. FORTICARE [Concomitant]
     Indication: PRODUCT USED FOR UNKNOWN INDICATION
     Dosage: 3 BOTTLES/DAY
     Route: 065
     Dates: start: 20200924
  14. ZOLADEX [Concomitant]
     Active Substance: GOSERELIN ACETATE
     Indication: PRODUCT USED FOR UNKNOWN INDICATION
     Dosage: 3.6 MG
     Route: 065
     Dates: start: 20200924

REACTIONS (14)
  - Influenza [Recovered/Resolved]
  - Pyrexia [Recovered/Resolved]
  - Bone pain [Recovering/Resolving]
  - Product supply issue [Not Recovered/Not Resolved]
  - Decreased immune responsiveness [Recovered/Resolved]
  - Toothache [Not Recovered/Not Resolved]
  - Decreased immune responsiveness [Recovered/Resolved]
  - Headache [Not Recovered/Not Resolved]
  - Product dose omission issue [Recovered/Resolved]
  - Fatigue [Recovered/Resolved]
  - Insomnia [Not Recovered/Not Resolved]
  - Radiation injury [Recovered/Resolved]
  - Movement disorder [Recovering/Resolving]
  - Product supply issue [Recovered/Resolved]

NARRATIVE: CASE EVENT DATE: 20201025
